FAERS Safety Report 5866071-0 (Version None)
Quarter: 2008Q3

REPORT INFORMATION
  Report Type: 
  Country: None (occurrence: None)
  Receive Date: 20080829
  Receipt Date: 20080829
  Transmission Date: 20090109
  Serious: Yes (Life-Threatening)
  Sender: FDA-Public Use
  Company Number: CO-BOEHRINGER INGELHEIM GMBH, GERMANY-2008-BP-13549CL

PATIENT
  Sex: Female
  Weight: 63 kg

DRUGS (2)
  1. MICARDIS [Suspect]
     Indication: HYPERTENSION
     Route: 048
     Dates: start: 20071201
  2. CATAPRESAN COMPRIMIDOS [Suspect]
     Indication: HYPERTENSION
     Route: 048

REACTIONS (1)
  - ORTHOSTATIC HYPERTENSION [None]
